FAERS Safety Report 23234349 (Version 1)
Quarter: 2023Q4

REPORT INFORMATION
  Report Type: Spontaneous
  Country: CN (occurrence: CN)
  Receive Date: 20231128
  Receipt Date: 20231128
  Transmission Date: 20240110
  Serious: Yes (Life-Threatening, Hospitalization)
  Sender: FDA-Public Use
  Company Number: CN-BAYER-2023A169511

PATIENT
  Age: 80 Year
  Sex: Female
  Weight: 55 kg

DRUGS (3)
  1. GLUCOBAY [Interacting]
     Active Substance: ACARBOSE
     Indication: Diabetes mellitus
     Dosage: 50 MG, TID
     Route: 048
     Dates: start: 20230101, end: 20230916
  2. GLICLAZIDE [Interacting]
     Active Substance: GLICLAZIDE
     Indication: Diabetes mellitus
     Dosage: 30 MG, QD
     Route: 048
     Dates: start: 20230101, end: 20230916
  3. METFORMIN HYDROCHLORIDE [Interacting]
     Active Substance: METFORMIN HYDROCHLORIDE
     Indication: Diabetes mellitus
     Dosage: 500 MG, TID
     Route: 048
     Dates: start: 20230101, end: 20230916

REACTIONS (9)
  - Hypoglycaemia [Recovering/Resolving]
  - Syncope [Recovered/Resolved]
  - Dizziness [Recovering/Resolving]
  - Asthenia [Recovering/Resolving]
  - Muscle twitching [Recovering/Resolving]
  - Vertigo [Recovering/Resolving]
  - Hyperhidrosis [Recovering/Resolving]
  - Palpitations [Recovering/Resolving]
  - Tremor [Recovering/Resolving]

NARRATIVE: CASE EVENT DATE: 20230914
